FAERS Safety Report 9564102 (Version 1)
Quarter: 2013Q3

REPORT INFORMATION
  Report Type: Spontaneous
  Country: US (occurrence: US)
  Receive Date: 20130929
  Receipt Date: 20130929
  Transmission Date: 20140515
  Serious: No
  Sender: FDA-Public Use
  Company Number: US-009507513-1309USA006295

PATIENT
  Sex: Female

DRUGS (1)
  1. NEXPLANON [Suspect]
     Dosage: UNK

REACTIONS (4)
  - Pain in extremity [Unknown]
  - Injury associated with device [Unknown]
  - Haemorrhage [Recovered/Resolved]
  - Product quality issue [Unknown]
